FAERS Safety Report 17516438 (Version 3)
Quarter: 2020Q1

REPORT INFORMATION
  Report Type: Spontaneous
  Country: US (occurrence: US)
  Receive Date: 20200309
  Receipt Date: 20200331
  Transmission Date: 20200409
  Serious: Yes (Death, Hospitalization)
  Sender: FDA-Public Use
  Company Number: US-PFIZER INC-2020101681

PATIENT
  Age: 59 Year
  Sex: Female

DRUGS (1)
  1. SUTENT [Suspect]
     Active Substance: SUNITINIB MALATE
     Indication: RENAL CELL CARCINOMA
     Dosage: 50 MG, CYCLIC (DAILY, 4 WEEKS ON, 2 WEEKS OFF)
     Route: 048
     Dates: start: 20200305

REACTIONS (9)
  - Neoplasm progression [Fatal]
  - Oxygen saturation abnormal [Unknown]
  - Anxiety [Unknown]
  - Peripheral swelling [Unknown]
  - Malaise [Unknown]
  - Dyspnoea [Unknown]
  - Abdominal distension [Unknown]
  - Musculoskeletal pain [Unknown]
  - Pain [Unknown]

NARRATIVE: CASE EVENT DATE: 202003
